FAERS Safety Report 7693629-9 (Version None)
Quarter: 2011Q3

REPORT INFORMATION
  Report Type: 
  Country: None (occurrence: None)
  Receive Date: 20110819
  Receipt Date: 20110811
  Transmission Date: 20111222
  Serious: Yes (Life-Threatening, Hospitalization, Other)
  Sender: FDA-Public Use
  Company Number: PHHY2010US33702

PATIENT
  Age: 48 Year
  Sex: Female
  Weight: 109 kg

DRUGS (11)
  1. PROGRAF [Concomitant]
     Indication: PROPHYLAXIS AGAINST TRANSPLANT REJECTION
     Dosage: 14 MG, QD
     Route: 048
     Dates: start: 20090914
  2. MYFORTIC [Suspect]
     Dosage: 360 MG, UNK
     Dates: start: 20100514
  3. MYFORTIC [Suspect]
     Indication: PROPHYLAXIS AGAINST TRANSPLANT REJECTION
     Dosage: 250 MG, UNK
     Route: 048
     Dates: start: 20090914, end: 20110301
  4. METOPROLOL [Concomitant]
     Dosage: 100 MG, UNK
     Route: 048
     Dates: start: 20090912
  5. METHYLPREDNISOLONE [Concomitant]
     Dosage: 5 OT, UNK
     Dates: start: 20091030
  6. PROGRAF [Concomitant]
     Dosage: 8 MG, DAILY
     Dates: start: 20100601
  7. PROGRAF [Concomitant]
     Dosage: 6 MG, DAILY
     Dates: start: 20100514
  8. PREDNISOLONE [Concomitant]
     Dosage: 5 MG, UNK
  9. METHYLPREDNISOLONE [Concomitant]
     Indication: PROPHYLAXIS AGAINST TRANSPLANT REJECTION
     Dosage: 1 G
     Dates: start: 20090914
  10. ACYCLOVIR [Concomitant]
     Indication: ORAL HERPES
     Dosage: 400 MG, BID
     Route: 048
     Dates: start: 20101011
  11. MYCOPHENOLATE MOFETIL [Concomitant]
     Indication: PROPHYLAXIS AGAINST TRANSPLANT REJECTION
     Dosage: 1000 MG
     Route: 048
     Dates: start: 20090912, end: 20100510

REACTIONS (7)
  - DYSPNOEA [None]
  - INFECTION [None]
  - OSTEOARTHRITIS [None]
  - ABDOMINAL ABSCESS [None]
  - URINARY TRACT INFECTION [None]
  - BK VIRUS INFECTION [None]
  - ORAL HERPES [None]
